FAERS Safety Report 18589574 (Version 1)
Quarter: 2020Q4

REPORT INFORMATION
  Report Type: Spontaneous
  Country: US (occurrence: US)
  Receive Date: 20201208
  Receipt Date: 20201208
  Transmission Date: 20210114
  Serious: No
  Sender: FDA-Public Use
  Company Number: US-JNJFOC-20201207799

PATIENT
  Age: 47 Year
  Sex: Female
  Weight: 54.93 kg

DRUGS (2)
  1. YONDELIS [Suspect]
     Active Substance: TRABECTEDIN
     Route: 042
     Dates: end: 20201116
  2. YONDELIS [Suspect]
     Active Substance: TRABECTEDIN
     Indication: SARCOMA UTERUS
     Route: 042
     Dates: end: 202010

REACTIONS (2)
  - Hepatic enzyme increased [Recovering/Resolving]
  - Blood alkaline phosphatase increased [Not Recovered/Not Resolved]

NARRATIVE: CASE EVENT DATE: 20200901
